FAERS Safety Report 25528030 (Version 1)
Quarter: 2025Q3

REPORT INFORMATION
  Report Type: Spontaneous
  Country: EU (occurrence: EU)
  Receive Date: 20250708
  Receipt Date: 20250708
  Transmission Date: 20251021
  Serious: Yes (Death, Other)
  Sender: GENMAB
  Company Number: EU-ABBVIE-6360360

PATIENT
  Age: 66 Year
  Sex: Female

DRUGS (1)
  1. EPCORITAMAB [Suspect]
     Active Substance: EPCORITAMAB
     Indication: Product used for unknown indication
     Route: 058

REACTIONS (4)
  - Death [Fatal]
  - Diabetes mellitus [Unknown]
  - Condition aggravated [Unknown]
  - COVID-19 pneumonia [Unknown]
